FAERS Safety Report 7219309-1 (Version None)
Quarter: 2011Q1

REPORT INFORMATION
  Report Type: 
  Country: None (occurrence: None)
  Receive Date: 20110111
  Receipt Date: 20110104
  Transmission Date: 20110831
  Serious: No
  Sender: FDA-Public Use
  Company Number: US-PFIZER INC-2011002703

PATIENT
  Age: 65 Year
  Sex: Male

DRUGS (2)
  1. LIPITOR [Suspect]
     Dosage: UNK
  2. ZETIA [Suspect]
     Dosage: UNK

REACTIONS (2)
  - NEUROPATHY PERIPHERAL [None]
  - MUSCULAR WEAKNESS [None]
